FAERS Safety Report 5341596-5 (Version None)
Quarter: 2007Q2

REPORT INFORMATION
  Report Type: 
  Country: None (occurrence: None)
  Receive Date: 20070529
  Receipt Date: 20070529
  Transmission Date: 20071010
  Serious: Yes (Other)
  Sender: FDA-Public Use
  Company Number: None

PATIENT
  Sex: Female
  Weight: 83.9154 kg

DRUGS (7)
  1. VYTORIN [Suspect]
     Indication: HYPERLIPIDAEMIA
     Dosage: 10/80 PO QHS
     Route: 048
     Dates: start: 20070130, end: 20070502
  2. FLONASE [Concomitant]
  3. DOXAZOSIN MESYLATE [Concomitant]
  4. TRAZODONE HCL [Concomitant]
  5. DIOVAN HCT [Concomitant]
  6. ASPIRIN [Concomitant]
  7. PRILOSEC [Concomitant]

REACTIONS (2)
  - ASTHENIA [None]
  - MYALGIA [None]
